FAERS Safety Report 8200620-2 (Version None)
Quarter: 2012Q1

REPORT INFORMATION
  Report Type: 
  Country: None (occurrence: None)
  Receive Date: 20120307
  Receipt Date: 20120223
  Transmission Date: 20120608
  Serious: Yes (Hospitalization)
  Sender: FDA-Public Use
  Company Number: DSA_55293_2012

PATIENT
  Sex: Female

DRUGS (9)
  1. DILTIAZEM HYDROCHLORIDE [Suspect]
     Indication: TACHYCARDIA
     Dosage: (200 MG QD ORAL)
     Route: 048
     Dates: start: 20110512, end: 20110518
  2. AMLODIPINE BESYLATE [Suspect]
     Indication: PRODUCT USED FOR UNKNOWN INDICATION
     Dosage: (DF ORAL)
     Route: 048
     Dates: start: 20110512, end: 20110518
  3. DABIGATRAN ETEXILATE (DABIGATRAN ETEXILATE) [Suspect]
     Indication: PRODUCT USED FOR UNKNOWN INDICATION
     Dosage: (220 MG QD ORAL)
     Route: 048
     Dates: start: 20110512, end: 20110518
  4. ALMARL (ALMARL - AROTINOLOL HYDROCHLORIDE) (NOT SPECIFIED) [Suspect]
     Indication: PRODUCT USED FOR UNKNOWN INDICATION
     Dosage: (DF ORAL)
     Route: 048
     Dates: start: 20110512, end: 20110518
  5. LASIX [Suspect]
     Indication: PRODUCT USED FOR UNKNOWN INDICATION
     Dosage: (20 MG QD ORAL)
     Route: 048
     Dates: start: 20110512, end: 20110518
  6. DOXAZOSIN MESYLATE [Suspect]
     Indication: PRODUCT USED FOR UNKNOWN INDICATION
     Dosage: (2 MG,  ORAL)
     Route: 048
     Dates: start: 20101021, end: 20110518
  7. ALDACTONE [Suspect]
     Indication: PRODUCT USED FOR UNKNOWN INDICATION
     Dosage: (DF ORAL)
     Route: 048
     Dates: start: 20110127, end: 20110518
  8. VALSARTAN  AND HYDROCHLOROTHIAZIDE [Suspect]
     Indication: PRODUCT USED FOR UNKNOWN INDICATION
     Dosage: (DF ORAL)
     Route: 048
     Dates: start: 20100902, end: 20110518
  9. ASPENON (ASPENON - APRINDINE HYDROCHLORIDE) (NOT SPECIFIED) [Suspect]
     Indication: PRODUCT USED FOR UNKNOWN INDICATION
     Dosage: (DF ORAL)
     Route: 048
     Dates: start: 20110512, end: 20110518

REACTIONS (5)
  - BRADYCARDIA [None]
  - GINGIVAL BLEEDING [None]
  - ATRIOVENTRICULAR BLOCK COMPLETE [None]
  - RENAL FAILURE ACUTE [None]
  - DRUG LEVEL INCREASED [None]
